FAERS Safety Report 13877888 (Version 1)
Quarter: 2017Q3

REPORT INFORMATION
  Report Type: Report from Study
  Country: CA (occurrence: CA)
  Receive Date: 20170817
  Receipt Date: 20170817
  Transmission Date: 20171127
  Serious: Yes (Other)
  Sender: FDA-Public Use
  Company Number: PHHY2017CA120346

PATIENT
  Age: 41 Year
  Sex: Male

DRUGS (7)
  1. SINGULAIR [Concomitant]
     Active Substance: MONTELUKAST SODIUM
     Indication: PRODUCT USED FOR UNKNOWN INDICATION
     Dosage: 10 MG, QD
     Route: 048
     Dates: start: 201706
  2. DILTIAZEM SANDOZ [Suspect]
     Active Substance: DILTIAZEM HYDROCHLORIDE
     Indication: ANGINA PECTORIS
     Dosage: 120 MG, QD
     Route: 048
     Dates: start: 201706
  3. ASMANEX [Concomitant]
     Active Substance: MOMETASONE FUROATE
     Indication: PRODUCT USED FOR UNKNOWN INDICATION
     Dosage: 200 UG, TID
     Route: 055
     Dates: start: 201706
  4. AVAMYS [Concomitant]
     Active Substance: FLUTICASONE FUROATE
     Indication: PRODUCT USED FOR UNKNOWN INDICATION
     Dosage: 27.5 UG, BID
     Route: 045
     Dates: start: 201706
  5. SYMBICORT [Concomitant]
     Active Substance: BUDESONIDE\FORMOTEROL FUMARATE DIHYDRATE
     Indication: PRODUCT USED FOR UNKNOWN INDICATION
     Dosage: UNK UNK, QID
     Route: 055
     Dates: start: 2015
  6. VENTOLIN [Concomitant]
     Active Substance: ALBUTEROL SULFATE
     Indication: PRODUCT USED FOR UNKNOWN INDICATION
     Dosage: 100 UG, QID
     Route: 055
     Dates: start: 2000
  7. PREDNISONE. [Concomitant]
     Active Substance: PREDNISONE
     Indication: PRODUCT USED FOR UNKNOWN INDICATION
     Dosage: 5 MG, BID
     Route: 048
     Dates: start: 20170728

REACTIONS (7)
  - Pulmonary congestion [Unknown]
  - Hypersensitivity [Unknown]
  - Bronchospasm [Unknown]
  - Nocturnal dyspnoea [Unknown]
  - Increased bronchial secretion [Unknown]
  - Asthma [Unknown]
  - Wheezing [Unknown]

NARRATIVE: CASE EVENT DATE: 2017
